FAERS Safety Report 8454488-X (Version None)
Quarter: 2012Q2

REPORT INFORMATION
  Report Type: 
  Country: None (occurrence: None)
  Receive Date: 20120621
  Receipt Date: 20120613
  Transmission Date: 20120825
  Serious: No
  Sender: FDA-Public Use
  Company Number: US-BIOGENIDEC-2012BI020957

PATIENT
  Sex: Female

DRUGS (4)
  1. AVONEX [Concomitant]
     Indication: MULTIPLE SCLEROSIS
     Route: 030
  2. TYSABRI [Suspect]
     Indication: MULTIPLE SCLEROSIS
     Route: 042
     Dates: start: 20050215
  3. TYSABRI [Suspect]
     Route: 042
     Dates: start: 20070412, end: 20070807
  4. TYSABRI [Suspect]
     Route: 042
     Dates: start: 20110829

REACTIONS (2)
  - ADVERSE DRUG REACTION [None]
  - PAIN [None]
